FAERS Safety Report 11180452 (Version 1)
Quarter: 2015Q2

REPORT INFORMATION
  Report Type: Spontaneous
  Country: FR (occurrence: FR)
  Receive Date: 20150611
  Receipt Date: 20150611
  Transmission Date: 20150821
  Serious: Yes (Death, Life-Threatening, Hospitalization)
  Sender: FDA-Public Use
  Company Number: FR-SA-2015SA080232

PATIENT
  Age: 66 Year
  Sex: Female

DRUGS (10)
  1. NOVONORM [Suspect]
     Active Substance: REPAGLINIDE
     Indication: TYPE 2 DIABETES MELLITUS
     Dosage: STRENGTH: 0.5 MG
     Route: 048
  2. LEVOTHYROX [Suspect]
     Active Substance: LEVOTHYROXINE
     Dosage: DOSE: 1.5
     Route: 048
  3. APROVEL [Suspect]
     Active Substance: IRBESARTAN
     Route: 048
  4. PREVISCAN [Suspect]
     Active Substance: FLUINDIONE
     Dosage: DOSE OF 20 MG; 0.5 TABLET TWICE PER WEEK
     Route: 048
  5. VERAPAMIL [Suspect]
     Active Substance: VERAPAMIL HYDROCHLORIDE
     Route: 048
  6. INEGY [Suspect]
     Active Substance: EZETIMIBE\SIMVASTATIN
     Dosage: 1 DF IS EITHER 10 MG 0R 40 MG
     Route: 048
  7. LEVOTHYROX [Suspect]
     Active Substance: LEVOTHYROXINE
     Route: 048
  8. FLUDEX [Suspect]
     Active Substance: INDAPAMIDE
     Route: 048
  9. HYDREA [Suspect]
     Active Substance: HYDROXYUREA
     Indication: EOSINOPHILIA
     Dosage: 6 TIMES PER DAY; START DATE ^ 30 DEC 2011
     Route: 048
     Dates: end: 20120104
  10. SYMBICORT [Suspect]
     Active Substance: BUDESONIDE\FORMOTEROL FUMARATE DIHYDRATE
     Dosage: 200/6 MCG
     Route: 055

REACTIONS (14)
  - Chronic kidney disease [Unknown]
  - Cardiogenic shock [Unknown]
  - Thrombocytopenia [Unknown]
  - Immune reconstitution inflammatory syndrome [Unknown]
  - Leukopenia [Recovered/Resolved]
  - Hypotension [Unknown]
  - Lung infection [Unknown]
  - Hypersensitivity vasculitis [Unknown]
  - Pleural effusion [Unknown]
  - Pericardial effusion [Unknown]
  - Acute respiratory distress syndrome [Unknown]
  - Toxoplasmosis [Unknown]
  - Hepatocellular injury [Unknown]
  - Eosinophilia [Fatal]

NARRATIVE: CASE EVENT DATE: 201104
